FAERS Safety Report 12619923 (Version 1)
Quarter: 2016Q3

REPORT INFORMATION
  Report Type: Report from Study
  Country: US (occurrence: US)
  Receive Date: 20160803
  Receipt Date: 20160803
  Transmission Date: 20161109
  Serious: Yes (Other)
  Sender: FDA-Public Use
  Company Number: US-SAOL THERAPEUTICS-2016SAO00296

PATIENT
  Sex: Male

DRUGS (8)
  1. BUPIVACAINE. [Suspect]
     Active Substance: BUPIVACAINE
     Dosage: 0.0299 MG, \DAY
     Route: 037
  2. BACLOFEN. [Suspect]
     Active Substance: BACLOFEN
     Indication: POST LAMINECTOMY SYNDROME
  3. VALIUM [Concomitant]
     Active Substance: DIAZEPAM
  4. NORTRIPTYLINE [Concomitant]
     Active Substance: NORTRIPTYLINE
  5. NUCYNTA [Concomitant]
     Active Substance: TAPENTADOL HYDROCHLORIDE
  6. CLONIDINE. [Suspect]
     Active Substance: CLONIDINE
     Dosage: 0.75 ?G, \DAY
     Route: 037
  7. PREDNISONE. [Concomitant]
     Active Substance: PREDNISONE
  8. BACLOFEN. [Suspect]
     Active Substance: BACLOFEN
     Indication: PAIN
     Dosage: 1.5 ?G, \DAY
     Route: 037

REACTIONS (4)
  - Implant site pain [Unknown]
  - Medical device site discharge [Unknown]
  - Post lumbar puncture syndrome [Recovered/Resolved]
  - Implant site extravasation [Recovered/Resolved]
